FAERS Safety Report 5359613-5 (Version None)
Quarter: 2007Q2

REPORT INFORMATION
  Report Type: 
  Country: None (occurrence: None)
  Receive Date: 20070530
  Receipt Date: 20061031
  Transmission Date: 20071010
  Serious: Yes (Hospitalization)
  Sender: FDA-Public Use
  Company Number: US200606002532

PATIENT
  Age: 41 Year
  Sex: Male
  Weight: 103.4 kg

DRUGS (6)
  1. ZYPREXA [Suspect]
     Indication: SCHIZOPHRENIA
     Dosage: 20 MG
     Dates: start: 19970301, end: 20040101
  2. ABILIFY [Concomitant]
  3. SEROQUEL [Concomitant]
  4. RISPERDAL /SWE/ (RISPERIDONE) [Concomitant]
  5. DEPAKENE [Concomitant]
  6. WELLBUTRIN [Concomitant]

REACTIONS (4)
  - BLOOD CHOLESTEROL INCREASED [None]
  - BLOOD TRIGLYCERIDES INCREASED [None]
  - DIABETES MELLITUS [None]
  - VISION BLURRED [None]
